FAERS Safety Report 15557166 (Version 3)
Quarter: 2018Q4

REPORT INFORMATION
  Report Type: Spontaneous
  Country: JP (occurrence: JP)
  Receive Date: 20181026
  Receipt Date: 20181213
  Transmission Date: 20190205
  Serious: Yes (Other)
  Sender: FDA-Public Use
  Company Number: JP-NOVOPROD-627879

PATIENT
  Age: 63 Year
  Sex: Male

DRUGS (2)
  1. TRESIBA CHU FLEXTOUCH [Suspect]
     Active Substance: INSULIN DEGLUDEC
     Indication: TYPE 2 DIABETES MELLITUS
     Dosage: 0-0-0-8 UNITS
     Route: 058
     Dates: start: 20180808, end: 20180814
  2. TRESIBA CHU FLEXTOUCH [Suspect]
     Active Substance: INSULIN DEGLUDEC
     Dosage: 0-0-0-9 UNITS
     Route: 058
     Dates: start: 20180814, end: 20180823

REACTIONS (2)
  - Visual impairment [Recovered/Resolved]
  - Blood glucose increased [Unknown]

NARRATIVE: CASE EVENT DATE: 20180815
